FAERS Safety Report 8249803-6 (Version None)
Quarter: 2012Q2

REPORT INFORMATION
  Report Type: 
  Country: None (occurrence: None)
  Receive Date: 20120402
  Receipt Date: 20120326
  Transmission Date: 20120825
  Serious: Yes (Other)
  Sender: FDA-Public Use
  Company Number: PHHY2012CA026567

PATIENT
  Sex: Female

DRUGS (3)
  1. GLEEVEC [Suspect]
     Dosage: 300 MG, DAILY
     Route: 048
  2. GLEEVEC [Suspect]
     Indication: CHRONIC MYELOID LEUKAEMIA
     Dosage: 400 MG, DAILY
     Route: 048
  3. DASATINIB [Suspect]

REACTIONS (6)
  - DRUG INEFFECTIVE [None]
  - MALAISE [None]
  - ATAXIA [None]
  - ABDOMINAL DISCOMFORT [None]
  - DIARRHOEA [None]
  - DIVERTICULITIS [None]
